FAERS Safety Report 6681937-X (Version None)
Quarter: 2010Q2

REPORT INFORMATION
  Report Type: 
  Country: None (occurrence: None)
  Receive Date: 20100409
  Receipt Date: 20100329
  Transmission Date: 20101027
  Serious: Yes (Other)
  Sender: FDA-Public Use
  Company Number: FKO201000109

PATIENT
  Age: 62 Year
  Sex: Female

DRUGS (3)
  1. CISPLATIN          (MANUFACTURER	UNKNOWN) [Suspect]
     Indication: SQUAMOUS CELL CARCINOMA OF THE CERVIX
  2. BLEOMYCIN (MANUFACTURER UNKNOWN) (BLEOMYCIN) (BLEOMYCIN) [Suspect]
     Indication: SQUAMOUS CELL CARCINOMA OF THE CERVIX
  3. VINCRISTINE [Concomitant]

REACTIONS (5)
  - BRONCHOPNEUMONIA [None]
  - ORGANISING PNEUMONIA [None]
  - PRODUCTIVE COUGH [None]
  - PULMONARY TOXICITY [None]
  - PYREXIA [None]
